FAERS Safety Report 19154655 (Version 1)
Quarter: 2021Q2

REPORT INFORMATION
  Report Type: Spontaneous
  Country: US (occurrence: US)
  Receive Date: 20210419
  Receipt Date: 20210419
  Transmission Date: 20210717
  Serious: No
  Sender: FDA-Public Use
  Company Number: US-AMNEAL PHARMACEUTICALS-2020-AMRX-01874

PATIENT
  Sex: Female

DRUGS (1)
  1. DEMECLOCYCLINE HYDROCHLORIDE. [Suspect]
     Active Substance: DEMECLOCYCLINE HYDROCHLORIDE
     Indication: BLOOD SODIUM DECREASED
     Dosage: UNK
     Route: 065

REACTIONS (1)
  - Drug ineffective for unapproved indication [Unknown]
